FAERS Safety Report 9096346 (Version 2)
Quarter: 2013Q1

REPORT INFORMATION
  Report Type: Spontaneous
  Country: US (occurrence: US)
  Receive Date: 20130207
  Receipt Date: 20130313
  Transmission Date: 20140127
  Serious: No
  Sender: FDA-Public Use
  Company Number: US-009507513-1302USA002884

PATIENT
  Age: 83 Year
  Sex: Female
  Weight: 68.27 kg

DRUGS (5)
  1. CLARITIN [Suspect]
     Indication: PRURITUS
     Dosage: 10 MG, ONCE
     Route: 048
     Dates: start: 20130131
  2. ATENOLOL [Concomitant]
     Indication: BLOOD PRESSURE
  3. CELEXA [Concomitant]
     Indication: NERVOUSNESS
  4. SYNTHROID [Suspect]
     Indication: THYROID DISORDER
  5. LOSARTAN POTASSIUM [Concomitant]
     Indication: BLOOD PRESSURE

REACTIONS (2)
  - Burning sensation [Recovered/Resolved]
  - Off label use [Unknown]
